FAERS Safety Report 12494970 (Version 1)
Quarter: 2016Q2

REPORT INFORMATION
  Report Type: Spontaneous
  Country: FR (occurrence: FR)
  Receive Date: 20160624
  Receipt Date: 20160624
  Transmission Date: 20160815
  Serious: Yes (Hospitalization)
  Sender: FDA-Public Use
  Company Number: FR-BAXTER-2016BAX022703

PATIENT
  Age: 54 Year
  Sex: Male

DRUGS (14)
  1. VELCADE [Suspect]
     Active Substance: BORTEZOMIB
     Indication: PLASMA CELL MYELOMA
     Dosage: VCD CHEMOTHERAPY PROTOCOL, 3 COURSES
     Route: 042
     Dates: start: 20150630
  2. DEXAMETHASONE. [Suspect]
     Active Substance: DEXAMETHASONE
     Dosage: VTD PROTOCOL
     Route: 065
     Dates: start: 20160408, end: 20160418
  3. THALIDOMIDE [Suspect]
     Active Substance: THALIDOMIDE
     Indication: PLASMA CELL MYELOMA
     Dosage: VTD PROTOCOL
     Route: 065
     Dates: start: 20160408, end: 20160418
  4. AMOXICILLINE ACIDE/ CLAVULANIQUE [Suspect]
     Active Substance: AMOXICILLIN\CLAVULANIC ACID
     Indication: PRODUCT USED FOR UNKNOWN INDICATION
     Route: 065
     Dates: start: 20150827, end: 20150901
  5. ENDOXAN 50 MG, COMPRIM? ENROB? [Suspect]
     Active Substance: CYCLOPHOSPHAMIDE
     Indication: HAEMATOPOIETIC STEM CELL MOBILISATION
     Route: 048
     Dates: start: 20150910
  6. ENDOXAN 50 MG, COMPRIM? ENROB? [Suspect]
     Active Substance: CYCLOPHOSPHAMIDE
     Dosage: VCD 4TH COURSE
     Route: 048
     Dates: start: 20151016, end: 20151023
  7. VELCADE [Suspect]
     Active Substance: BORTEZOMIB
     Dosage: VCD CHEMOTHERAPY PROTOCOL, FOURTH COURSE LAST ADMINISTRATION
     Route: 042
     Dates: start: 20151016, end: 20151026
  8. DEXAMETHASONE. [Suspect]
     Active Substance: DEXAMETHASONE
     Indication: PLASMA CELL MYELOMA
     Dosage: VCD CHEMOTHERAPY PROTOCOL, 3 COURSES
     Route: 042
     Dates: start: 20150630
  9. ENDOXAN 50 MG, COMPRIM? ENROB? [Suspect]
     Active Substance: CYCLOPHOSPHAMIDE
     Indication: PLASMA CELL MYELOMA
     Dosage: VCD CHEMOTHERAPY PROTOCOL, 3 COURSES
     Route: 048
     Dates: start: 20150630
  10. CIPROFLOXACINE [Suspect]
     Active Substance: CIPROFLOXACIN
     Indication: PRODUCT USED FOR UNKNOWN INDICATION
     Dosage: 250 UNIT NOT REPORTED
     Route: 065
     Dates: start: 20150827, end: 20150901
  11. DEXAMETHASONE. [Suspect]
     Active Substance: DEXAMETHASONE
     Dosage: VCD 4TH COURSE
     Route: 042
     Dates: start: 20151016, end: 20151026
  12. VELCADE [Suspect]
     Active Substance: BORTEZOMIB
     Dosage: VTD PROTOCOL
     Route: 065
     Dates: start: 20160408, end: 20160418
  13. CEFIXIME. [Concomitant]
     Active Substance: CEFIXIME
     Indication: PRODUCT USED FOR UNKNOWN INDICATION
     Route: 065
     Dates: start: 20160403, end: 20160410
  14. CIPROFLOXACIN. [Concomitant]
     Active Substance: CIPROFLOXACIN
     Indication: PRODUCT USED FOR UNKNOWN INDICATION
     Route: 065
     Dates: start: 20160403, end: 20160410

REACTIONS (4)
  - Haematuria [Unknown]
  - Haematuria [Recovered/Resolved]
  - Renal impairment [Unknown]
  - Tubulointerstitial nephritis [Not Recovered/Not Resolved]

NARRATIVE: CASE EVENT DATE: 201506
